FAERS Safety Report 4879120-3 (Version None)
Quarter: 2006Q1

REPORT INFORMATION
  Report Type: 
  Country: None (occurrence: None)
  Receive Date: 20060112
  Receipt Date: 20060104
  Transmission Date: 20060701
  Serious: Yes (Other)
  Sender: FDA-Public Use
  Company Number: US-JNJFOC-20060101389

PATIENT
  Sex: Male
  Weight: 40.37 kg

DRUGS (1)
  1. CONCERTA [Suspect]
     Indication: ATTENTION DEFICIT/HYPERACTIVITY DISORDER
     Dosage: PT. HAS TAKEN ^VARYING DOSAGES FOR THE PAST 3 YEARS^
     Route: 048

REACTIONS (4)
  - ANGER [None]
  - MOOD ALTERED [None]
  - PARANOIA [None]
  - SUICIDAL IDEATION [None]
